FAERS Safety Report 4541120-0 (Version None)
Quarter: 2004Q4

REPORT INFORMATION
  Report Type: 
  Country: None (occurrence: None)
  Receive Date: 20041228
  Receipt Date: 20041209
  Transmission Date: 20050328
  Serious: Yes (Hospitalization)
  Sender: FDA-Public Use
  Company Number: J200405227

PATIENT
  Age: 14 Year
  Sex: Male

DRUGS (1)
  1. MYSLEE ZOLPIDEM TABLET 10MG [Suspect]
     Dosage: 5MG PO
     Route: 048
     Dates: start: 20041207, end: 20041207

REACTIONS (4)
  - DIFFICULTY IN WALKING [None]
  - DYSARTHRIA [None]
  - LOSS OF CONSCIOUSNESS [None]
  - MEDICATION ERROR [None]
